FAERS Safety Report 17569065 (Version 1)
Quarter: 2020Q1

REPORT INFORMATION
  Report Type: Spontaneous
  Country: None (occurrence: FR)
  Receive Date: 20200321
  Receipt Date: 20200321
  Transmission Date: 20200409
  Serious: Yes (Hospitalization)
  Sender: FDA-Public Use
  Company Number: FR-CANTON LABORATORIES, LLC-2081854

PATIENT
  Age: 21 Year
  Sex: Female

DRUGS (6)
  1. MINIDRIL [Suspect]
     Active Substance: ETHINYL ESTRADIOL\LEVONORGESTREL
     Route: 048
     Dates: start: 2013, end: 202001
  2. NAPROSYN [Suspect]
     Active Substance: NAPROXEN
     Indication: GAIT DISTURBANCE
     Route: 048
     Dates: start: 201808, end: 201810
  3. AMGEVITA [Suspect]
     Active Substance: ADALIMUMAB
     Route: 058
     Dates: start: 201908
  4. KETOPROFEN. [Suspect]
     Active Substance: KETOPROFEN
     Route: 048
     Dates: start: 201810, end: 201811
  5. BENEPALI [Suspect]
     Active Substance: ETANERCEPT
     Route: 058
     Dates: start: 201901, end: 201908
  6. METHOTREXATE. [Suspect]
     Active Substance: METHOTREXATE
     Route: 048
     Dates: start: 201811

REACTIONS (1)
  - Hepatic adenoma [Recovering/Resolving]

NARRATIVE: CASE EVENT DATE: 20191122
